FAERS Safety Report 8698006 (Version 2)
Quarter: 2013Q4

REPORT INFORMATION
  Report Type: Spontaneous
  Country: US (occurrence: US)
  Receive Date: 20120801
  Receipt Date: 20131101
  Transmission Date: 20140711
  Serious: No
  Sender: FDA-Public Use
  Company Number: US-009507513-1207USA009571

PATIENT
  Sex: Male

DRUGS (2)
  1. JANUVIA [Suspect]
     Indication: DIABETES MELLITUS
     Dosage: UNK
     Route: 048
  2. JANUMET [Concomitant]
     Dosage: UNK
     Route: 048
     Dates: start: 2011, end: 2011

REACTIONS (1)
  - Diarrhoea [Unknown]
